FAERS Safety Report 8622398-0 (Version None)
Quarter: 2012Q3

REPORT INFORMATION
  Report Type: 
  Country: None (occurrence: None)
  Receive Date: 20120827
  Receipt Date: 20120821
  Transmission Date: 20120928
  Serious: No
  Sender: FDA-Public Use
  Company Number: US-BIOGENIDEC-2012BI032672

PATIENT
  Age: 47 Year
  Sex: Female

DRUGS (3)
  1. AVONEX [Concomitant]
     Route: 030
  2. AVONEX [Concomitant]
     Indication: MULTIPLE SCLEROSIS
     Route: 030
     Dates: start: 19991110
  3. TYSABRI [Suspect]
     Indication: MULTIPLE SCLEROSIS
     Route: 042
     Dates: start: 20120820

REACTIONS (7)
  - IRRITABLE BOWEL SYNDROME [None]
  - BALANCE DISORDER [None]
  - DIARRHOEA [None]
  - POOR QUALITY SLEEP [None]
  - FATIGUE [None]
  - ARTHRALGIA [None]
  - HEADACHE [None]
